FAERS Safety Report 24620255 (Version 1)
Quarter: 2024Q4

REPORT INFORMATION
  Report Type: Spontaneous
  Country: US (occurrence: US)
  Receive Date: 20241114
  Receipt Date: 20241114
  Transmission Date: 20250115
  Serious: No
  Sender: PFIZER
  Company Number: US-PFIZER INC-202400299519

PATIENT
  Age: 55 Year
  Sex: Male

DRUGS (1)
  1. VELSIPITY [Suspect]
     Active Substance: ETRASIMOD ARGININE
     Dosage: 1 DF, 1X/DAY (30 DAY, 30, REFILLS 2)
     Route: 048

REACTIONS (3)
  - Platelet count decreased [Unknown]
  - Blood glucose increased [Unknown]
  - Increased appetite [Unknown]
